FAERS Safety Report 13666863 (Version 1)
Quarter: 2017Q2

REPORT INFORMATION
  Report Type: Spontaneous
  Country: US (occurrence: US)
  Receive Date: 20170619
  Receipt Date: 20170619
  Transmission Date: 20170830
  Serious: No
  Sender: FDA-Public Use
  Company Number: US-ROCHE-1321852

PATIENT
  Sex: Male

DRUGS (1)
  1. XELODA [Suspect]
     Active Substance: CAPECITABINE
     Indication: HEPATOBILIARY CANCER
     Dosage: 5 TABS AM AND 4 TABS PM
     Route: 048
     Dates: start: 20130925, end: 20131209

REACTIONS (2)
  - Drug ineffective [Unknown]
  - Neoplasm progression [Unknown]
